FAERS Safety Report 7338901-7 (Version None)
Quarter: 2011Q1

REPORT INFORMATION
  Report Type: 
  Country: None (occurrence: None)
  Receive Date: 20110308
  Receipt Date: 20110228
  Transmission Date: 20110831
  Serious: Yes (Other)
  Sender: FDA-Public Use
  Company Number: US-ASTRAZENECA-2011SE10911

PATIENT
  Age: 59 Year
  Sex: Male

DRUGS (2)
  1. NAPROSYN [Concomitant]
     Indication: JOINT INJURY
  2. VIMOVO [Suspect]
     Route: 048
     Dates: start: 20110222

REACTIONS (1)
  - HAEMATOCHEZIA [None]
